FAERS Safety Report 16206728 (Version 1)
Quarter: 2019Q2

REPORT INFORMATION
  Report Type: Spontaneous
  Country: US (occurrence: US)
  Receive Date: 20190313
  Receipt Date: 20190313
  Transmission Date: 20190711
  Serious: Yes (Hospitalization)
  Sender: FDA-Public Use
  Company Number: None

PATIENT
  Age: 26 Year
  Sex: Female

DRUGS (5)
  1. DEKAS PLUS [Concomitant]
  2. SCANDISHAKE [Concomitant]
     Active Substance: DIETARY SUPPLEMENT
  3. ACETYLCYSTEINE. [Concomitant]
     Active Substance: ACETYLCYSTEINE
  4. CAYSTON [Concomitant]
     Active Substance: AZTREONAM
  5. AZITHROMYCIN 500MG TABLET [Suspect]
     Active Substance: AZITHROMYCIN
     Indication: CYSTIC FIBROSIS
     Route: 048
     Dates: start: 20170508

REACTIONS (1)
  - Infective pulmonary exacerbation of cystic fibrosis [None]
